FAERS Safety Report 9236241 (Version 2)
Quarter: 2013Q2

REPORT INFORMATION
  Report Type: Spontaneous
  Country: DK (occurrence: DK)
  Receive Date: 20130417
  Receipt Date: 20130419
  Transmission Date: 20140414
  Serious: Yes (Life-Threatening, Hospitalization)
  Sender: FDA-Public Use
  Company Number: DK-ELI_LILLY_AND_COMPANY-DK201304001927

PATIENT
  Sex: Male

DRUGS (24)
  1. ZYPADHERA [Suspect]
     Indication: SCHIZOPHRENIA
     Dosage: 405 MG, UNKNOWN
     Route: 030
  2. PAMOL [Concomitant]
     Dosage: 500 MG, UNK
  3. SPIROCORT [Concomitant]
     Dosage: 0.5 MG, UNK
  4. HJERTEMAGNYL [Concomitant]
     Dosage: 75 MG, UNK
  5. CEFIN [Concomitant]
     Dosage: 500 MG, UNK
  6. METRONIDAZOL [Concomitant]
     Dosage: 5 MG, UNK
  7. DUOVENT [Concomitant]
  8. ANTABUS [Concomitant]
     Dosage: 400 MG, UNK
  9. SPIRIVA [Concomitant]
     Dosage: 2.5 UNK, UNK
  10. CLARITHROMYCIN HEXAL [Concomitant]
     Dosage: 500 MG, UNK
  11. BRICANYL [Concomitant]
  12. AMLODIPIN ACTAVIS                  /00972402/ [Concomitant]
     Dosage: 5 MG, UNK
  13. MOVICOL [Concomitant]
  14. DUOVENT [Concomitant]
  15. FRAGMIN [Concomitant]
  16. B-COMBIN STAERK ^DAK^ [Concomitant]
  17. SERETIDE [Concomitant]
  18. METOPROLOL SUCCINATE [Concomitant]
     Dosage: 50 MG, UNK
  19. CEFUROXIM FRESENIUS [Concomitant]
     Dosage: 1500 MG, UNK
  20. B1 VITAMIN [Concomitant]
     Dosage: 300 MG, UNK
  21. RISPERAT [Concomitant]
     Dosage: 1 MG, UNK
  22. LAXOBERAL [Concomitant]
     Dosage: 7.5 MG, UNK
  23. UNIKALK BASIC [Concomitant]
  24. NEXIUM [Concomitant]
     Dosage: 20 MG, UNK

REACTIONS (1)
  - Hypothermia [Unknown]
